FAERS Safety Report 14756228 (Version 1)
Quarter: 2018Q2

REPORT INFORMATION
  Report Type: Spontaneous
  Country: US (occurrence: US)
  Receive Date: 20180413
  Receipt Date: 20180413
  Transmission Date: 20180711
  Serious: No
  Sender: FDA-Public Use
  Company Number: US-ASTRAZENECA-2018SE34968

PATIENT
  Age: 26 Year
  Sex: Female

DRUGS (1)
  1. PULMICORT FLEXHALER [Suspect]
     Active Substance: BUDESONIDE
     Indication: ASTHMA
     Route: 055
     Dates: start: 2008

REACTIONS (8)
  - Off label use [Unknown]
  - Dyspnoea [Unknown]
  - Drug ineffective [Unknown]
  - Product use issue [Unknown]
  - Intentional device misuse [Unknown]
  - Device malfunction [Unknown]
  - Asthma [Unknown]
  - Product taste abnormal [Unknown]

NARRATIVE: CASE EVENT DATE: 2008
